FAERS Safety Report 4356235-X (Version None)
Quarter: 2004Q2

REPORT INFORMATION
  Report Type: 
  Country: None (occurrence: None)
  Receive Date: 20040511
  Receipt Date: 20040421
  Transmission Date: 20050107
  Serious: Yes (Hospitalization)
  Sender: FDA-Public Use
  Company Number: 195081

PATIENT
  Age: 58 Year
  Sex: Male
  Weight: 68.0396 kg

DRUGS (10)
  1. AVONEX [Suspect]
     Indication: MULTIPLE SCLEROSIS
     Dosage: 30 MCG QW IM
     Route: 030
     Dates: start: 20000906, end: 20031120
  2. AVONEX [Suspect]
     Indication: MULTIPLE SCLEROSIS
     Dosage: 30 MCG QW IM
     Route: 030
     Dates: start: 20031126, end: 20031126
  3. AVONEX [Suspect]
     Indication: MULTIPLE SCLEROSIS
     Dosage: 30 MCG QW IM
     Route: 030
     Dates: start: 20031126
  4. MULTIVITAMIN [Concomitant]
  5. CALCIUM [Concomitant]
  6. VALTREX [Concomitant]
  7. ACYCLOVIR [Concomitant]
  8. VIOXX [Concomitant]
  9. QUESTRAN [Concomitant]
  10. ALLEGRA [Concomitant]

REACTIONS (10)
  - DRUG ERUPTION [None]
  - DRUG HYPERSENSITIVITY [None]
  - ERYTHEMA [None]
  - FATIGUE [None]
  - NERVE COMPRESSION [None]
  - NERVOUSNESS [None]
  - RASH PAPULAR [None]
  - SKIN OEDEMA [None]
  - THROAT TIGHTNESS [None]
  - URTICARIA GENERALISED [None]
